FAERS Safety Report 11908862 (Version 2)
Quarter: 2016Q1

REPORT INFORMATION
  Report Type: Spontaneous
  Country: US (occurrence: US)
  Receive Date: 20160111
  Receipt Date: 20160303
  Transmission Date: 20160526
  Serious: Yes (Other)
  Sender: FDA-Public Use
  Company Number: US-ALLERGAN-1600408US

PATIENT
  Age: 60 Year
  Sex: Male

DRUGS (2)
  1. COMBIGAN [Suspect]
     Active Substance: BRIMONIDINE TARTRATE\TIMOLOL MALEATE
     Indication: GLAUCOMA
     Dosage: 2 GTT, BID
     Route: 047
     Dates: start: 201510
  2. LUMIGAN [Suspect]
     Active Substance: BIMATOPROST
     Indication: GLAUCOMA
     Dosage: 2 GTT, QD
     Route: 047
     Dates: start: 201510

REACTIONS (4)
  - Tunnel vision [Not Recovered/Not Resolved]
  - Visual field defect [Not Recovered/Not Resolved]
  - Weight decreased [Unknown]
  - Visual acuity reduced [Not Recovered/Not Resolved]
